FAERS Safety Report 12504562 (Version 2)
Quarter: 2017Q2

REPORT INFORMATION
  Report Type: Spontaneous
  Country: PL (occurrence: PL)
  Receive Date: 20160628
  Receipt Date: 20170607
  Transmission Date: 20170830
  Serious: Yes (Other)
  Sender: FDA-Public Use
  Company Number: PL-KADMON PHARMACEUTICALS, LLC-KAD201606-002228

PATIENT
  Age: 55 Year
  Sex: Female
  Weight: 61 kg

DRUGS (4)
  1. PEGYLATED INTERFERON ALPHA NOS [Suspect]
     Active Substance: PEGINTERFERON ALFA-2A OR PEGINTERFERON ALFA-2B
  2. AMOXICILLIN. [Concomitant]
     Active Substance: AMOXICILLIN
  3. RIBAVIRIN. [Suspect]
     Active Substance: RIBAVIRIN
     Indication: CHRONIC HEPATITIS C
  4. PEGYLATED INTERFERON ALPHA NOS [Suspect]
     Active Substance: PEGINTERFERON ALFA-2A OR PEGINTERFERON ALFA-2B
     Indication: CHRONIC HEPATITIS C

REACTIONS (1)
  - Ventricular tachycardia [Unknown]
